FAERS Safety Report 6015136-1 (Version None)
Quarter: 2008Q4

REPORT INFORMATION
  Report Type: 
  Country: None (occurrence: None)
  Receive Date: 20081219
  Receipt Date: 20081219
  Transmission Date: 20090506
  Serious: Yes (Hospitalization)
  Sender: FDA-Public Use
  Company Number: None

PATIENT
  Sex: Male
  Weight: 81.7 kg

DRUGS (19)
  1. REVLIMID [Suspect]
     Indication: PROSTATE CANCER
     Dosage: 25MG QDAY X 21DAYS PO
     Route: 048
     Dates: start: 20080708, end: 20080729
  2. GLYBURIDE [Concomitant]
  3. FELODIPINE [Concomitant]
  4. LESOL [Concomitant]
  5. SORBIC ACID [Concomitant]
  6. GABAPENTIN [Concomitant]
  7. VIT E [Concomitant]
  8. HYDROCHLOROTHIAZIDE [Concomitant]
  9. LISINOPRIL [Concomitant]
  10. METFORMIN HCL [Concomitant]
  11. ASPIRIN [Concomitant]
  12. OMEGA 3 FATTY ACIDS [Concomitant]
  13. LASIX [Concomitant]
  14. ATENOLOL [Concomitant]
  15. ZETIA [Concomitant]
  16. CA [Concomitant]
  17. FOSAMAX [Concomitant]
  18. LUPRON [Concomitant]
  19. COUMADIN [Concomitant]

REACTIONS (9)
  - ATRIAL FIBRILLATION [None]
  - COUGH [None]
  - DIZZINESS [None]
  - DYSPNOEA [None]
  - FLUID OVERLOAD [None]
  - HAEMATOCRIT DECREASED [None]
  - HAEMOGLOBIN DECREASED [None]
  - OEDEMA PERIPHERAL [None]
  - PLATELET COUNT DECREASED [None]
